FAERS Safety Report 8214567-9 (Version None)
Quarter: 2012Q1

REPORT INFORMATION
  Report Type: 
  Country: None (occurrence: None)
  Receive Date: 20120316
  Receipt Date: 20120305
  Transmission Date: 20120608
  Serious: Yes (Other)
  Sender: FDA-Public Use
  Company Number: US-JNJFOC-20120304327

PATIENT
  Sex: Female

DRUGS (7)
  1. SOMA [Suspect]
     Indication: MUSCLE SPASMS
     Route: 048
     Dates: start: 19930101
  2. DURAGESIC-100 [Suspect]
     Route: 062
     Dates: start: 20120301
  3. MORPHINE SULFATE [Suspect]
     Indication: PAIN
     Route: 048
     Dates: start: 20110101
  4. METHADONE HCL [Suspect]
     Indication: PAIN
     Route: 048
     Dates: start: 19930101
  5. DURAGESIC-100 [Suspect]
     Route: 062
     Dates: start: 20090101, end: 20120301
  6. VICODIN [Suspect]
     Indication: PAIN
     Route: 048
     Dates: start: 19920101, end: 19930101
  7. DURAGESIC-100 [Suspect]
     Indication: PAIN
     Route: 062
     Dates: start: 19920101, end: 20090101

REACTIONS (6)
  - DRUG INEFFECTIVE [None]
  - WRONG TECHNIQUE IN DRUG USAGE PROCESS [None]
  - PAIN [None]
  - MIGRAINE [None]
  - NEURALGIA [None]
  - SPINAL FUSION SURGERY [None]
